FAERS Safety Report 19767279 (Version 1)
Quarter: 2021Q3

REPORT INFORMATION
  Report Type: Spontaneous
  Country: US (occurrence: US)
  Receive Date: 20210830
  Receipt Date: 20210830
  Transmission Date: 20211014
  Serious: No
  Sender: FDA-Public Use
  Company Number: US-ASCEND THERAPEUTICS US, LLC-2117822

PATIENT
  Sex: Female

DRUGS (4)
  1. ESTROGEL [Suspect]
     Active Substance: ESTRADIOL
     Indication: PRODUCT USED FOR UNKNOWN INDICATION
     Route: 065
  2. PROGESTERONE, NOS(PROGESTERONE) [Suspect]
     Active Substance: PROGESTERONE
     Route: 065
  3. ESTROGEL [Suspect]
     Active Substance: ESTRADIOL
  4. ESTRADIOL, NOS(ESTRADIOL) [Suspect]
     Active Substance: ESTRADIOL
     Route: 065

REACTIONS (2)
  - Uterine spasm [Recovered/Resolved]
  - Abdominal distension [Recovered/Resolved]

NARRATIVE: CASE EVENT DATE: 2021
